FAERS Safety Report 7702309-2 (Version None)
Quarter: 2011Q3

REPORT INFORMATION
  Report Type: 
  Country: None (occurrence: None)
  Receive Date: 20110822
  Receipt Date: 20110817
  Transmission Date: 20111222
  Serious: Yes (Death, Hospitalization, Other)
  Sender: FDA-Public Use
  Company Number: CL-PFIZER INC-2011138227

PATIENT
  Age: 65 Year
  Sex: Female

DRUGS (2)
  1. AZULFIDINE [Suspect]
     Indication: COLITIS ULCERATIVE
     Dosage: 500 MG, UNK
     Route: 048
     Dates: start: 20010101
  2. FLUOXETINE [Concomitant]
     Indication: DEPRESSION

REACTIONS (3)
  - GASTROINTESTINAL DISORDER [None]
  - GASTROINTESTINAL ANASTOMOTIC LEAK [None]
  - MULTI-ORGAN FAILURE [None]
